FAERS Safety Report 14363797 (Version 1)
Quarter: 2018Q1

REPORT INFORMATION
  Report Type: Spontaneous
  Country: US (occurrence: US)
  Receive Date: 20180108
  Receipt Date: 20180108
  Transmission Date: 20180509
  Serious: Yes (Hospitalization)
  Sender: FDA-Public Use
  Company Number: US-BIOGEN-2018BI00504815

PATIENT
  Age: 42 Year
  Sex: Female

DRUGS (1)
  1. ZINBRYTA [Suspect]
     Active Substance: DACLIZUMAB
     Indication: MULTIPLE SCLEROSIS
     Route: 065

REACTIONS (5)
  - Memory impairment [Not Recovered/Not Resolved]
  - Inappropriate schedule of drug administration [Unknown]
  - Seizure [Not Recovered/Not Resolved]
  - Balance disorder [Not Recovered/Not Resolved]
  - Central nervous system lesion [Not Recovered/Not Resolved]

NARRATIVE: CASE EVENT DATE: 201711
